FAERS Safety Report 7657920-4 (Version None)
Quarter: 2011Q3

REPORT INFORMATION
  Report Type: 
  Country: None (occurrence: None)
  Receive Date: 20110805
  Receipt Date: 20090205
  Transmission Date: 20111222
  Serious: No
  Sender: FDA-Public Use
  Company Number: 2009BI004154

PATIENT
  Age: 49 Year
  Sex: Female

DRUGS (1)
  1. TYSABRI [Suspect]
     Indication: MULTIPLE SCLEROSIS
     Route: 042
     Dates: start: 20080620

REACTIONS (7)
  - FATIGUE [None]
  - ASTHENIA [None]
  - DIPLOPIA [None]
  - STRESS [None]
  - EYE PAIN [None]
  - INSOMNIA [None]
  - BACK PAIN [None]
